FAERS Safety Report 6897692-4 (Version None)
Quarter: 2010Q3

REPORT INFORMATION
  Report Type: 
  Country: None (occurrence: None)
  Receive Date: 20100729
  Receipt Date: 20100715
  Transmission Date: 20110219
  Serious: Yes (Life-Threatening, Hospitalization)
  Sender: FDA-Public Use
  Company Number: 1000012050

PATIENT
  Age: 50 Year
  Sex: Female
  Weight: 68 kg

DRUGS (3)
  1. ESCITALOPRAM [Suspect]
     Indication: DEPRESSION
     Dosage: 20 MG (20 MG, 1 IN 1 D), ORAL
     Route: 048
     Dates: start: 20080925, end: 20091103
  2. XANAX [Suspect]
     Dosage: 0.75 MG (0.75 MG, 1 IN 1 D), ORAL
     Route: 048
     Dates: start: 20080925, end: 20091103
  3. PROPRANOLOL [Suspect]
     Dosage: 160 MG (80 MG, 2 IN 1 D), ORAL
     Route: 048
     Dates: start: 20080825, end: 20091103

REACTIONS (3)
  - CEREBRAL VASOCONSTRICTION [None]
  - HEADACHE [None]
  - SEROTONIN SYNDROME [None]
